FAERS Safety Report 5370842-7 (Version None)
Quarter: 2007Q2

REPORT INFORMATION
  Report Type: 
  Country: None (occurrence: None)
  Receive Date: 20070626
  Receipt Date: 20070618
  Transmission Date: 20071010
  Serious: Yes (Life-Threatening, Hospitalization)
  Sender: FDA-Public Use
  Company Number: GB-BRISTOL-MYERS SQUIBB COMPANY-13798350

PATIENT
  Age: 59 Year
  Sex: Female

DRUGS (11)
  1. CYCLOPHOSPHAMIDE [Suspect]
     Indication: BREAST CANCER
     Route: 042
     Dates: start: 20061205, end: 20061205
  2. METHOTREXATE [Suspect]
     Indication: BREAST CANCER
     Dates: start: 20061003, end: 20061128
  3. NEULASTA [Suspect]
     Indication: BREAST CANCER
     Dates: start: 20061003, end: 20061128
  4. EPIRUBICIN [Suspect]
     Indication: BREAST CANCER
     Dates: start: 20061003, end: 20061128
  5. FLUOROURACIL [Suspect]
     Indication: BREAST CANCER
     Dates: start: 20061003, end: 20061128
  6. ONDANSETRON [Concomitant]
     Route: 048
     Dates: start: 20061205, end: 20061207
  7. DEXAMETHASONE 0.5MG TAB [Concomitant]
     Route: 048
     Dates: start: 20061206, end: 20061207
  8. AMLODIPINE [Concomitant]
     Route: 048
  9. PRAVASTATIN SODIUM [Concomitant]
     Route: 048
  10. PERINDOPRIL ERBUMINE [Concomitant]
     Route: 048
  11. MINOCYCLINE HCL [Concomitant]
     Route: 048

REACTIONS (2)
  - DYSPNOEA [None]
  - PYREXIA [None]
